FAERS Safety Report 23662546 (Version 1)
Quarter: 2024Q1

REPORT INFORMATION
  Report Type: Spontaneous
  Country: US (occurrence: US)
  Receive Date: 20240322
  Receipt Date: 20240322
  Transmission Date: 20240410
  Serious: Yes (Other)
  Sender: FDA-Public Use
  Company Number: US-CLINIGEN-US-CLI-2024-009564

PATIENT

DRUGS (15)
  1. DEXRAZOXANE HYDROCHLORIDE [Suspect]
     Active Substance: DEXRAZOXANE HYDROCHLORIDE
     Indication: Neuroblastoma
  2. DEXRAZOXANE HYDROCHLORIDE [Suspect]
     Active Substance: DEXRAZOXANE HYDROCHLORIDE
     Indication: Chemotherapy
  3. CYCLOPHOSPHAMIDE [Concomitant]
     Active Substance: CYCLOPHOSPHAMIDE
     Indication: Neuroblastoma
  4. CYCLOPHOSPHAMIDE [Concomitant]
     Active Substance: CYCLOPHOSPHAMIDE
     Indication: Chemotherapy
  5. TOPOTECAN [Concomitant]
     Active Substance: TOPOTECAN HYDROCHLORIDE
     Indication: Neuroblastoma
  6. TOPOTECAN [Concomitant]
     Active Substance: TOPOTECAN HYDROCHLORIDE
     Indication: Chemotherapy
  7. CISPLATIN [Concomitant]
     Active Substance: CISPLATIN
     Indication: Neuroblastoma
  8. CISPLATIN [Concomitant]
     Active Substance: CISPLATIN
     Indication: Chemotherapy
  9. ETOPOSIDE [Concomitant]
     Active Substance: ETOPOSIDE
     Indication: Neuroblastoma
  10. ETOPOSIDE [Concomitant]
     Active Substance: ETOPOSIDE
     Indication: Chemotherapy
  11. VINCRISTINE [Concomitant]
     Active Substance: VINCRISTINE
     Indication: Neuroblastoma
  12. VINCRISTINE [Concomitant]
     Active Substance: VINCRISTINE
     Indication: Chemotherapy
  13. DOXORUBICIN [Concomitant]
     Active Substance: DOXORUBICIN
     Indication: Neuroblastoma
  14. DOXORUBICIN [Concomitant]
     Active Substance: DOXORUBICIN
     Indication: Chemotherapy
  15. CAPTOPRIL [Concomitant]
     Active Substance: CAPTOPRIL
     Indication: Hypertension

REACTIONS (1)
  - Off label use [Unknown]
